FAERS Safety Report 18908903 (Version 1)
Quarter: 2021Q1

REPORT INFORMATION
  Report Type: Spontaneous
  Country: US (occurrence: US)
  Receive Date: 20210217
  Receipt Date: 20210217
  Transmission Date: 20210420
  Serious: Yes (Life-Threatening, Hospitalization, Disabling, Other)
  Sender: FDA-Public Use
  Company Number: None

PATIENT
  Age: 75 Year
  Sex: Male
  Weight: 108 kg

DRUGS (1)
  1. OPDIVO [Suspect]
     Active Substance: NIVOLUMAB
     Indication: MALIGNANT MELANOMA
     Dates: start: 20180515

REACTIONS (6)
  - Dysphagia [None]
  - Impaired quality of life [None]
  - Rhabdomyolysis [None]
  - Gait inability [None]
  - Wheelchair user [None]
  - Respiratory failure [None]

NARRATIVE: CASE EVENT DATE: 20180526
